FAERS Safety Report 20770565 (Version 1)
Quarter: 2022Q2

REPORT INFORMATION
  Report Type: Spontaneous
  Country: HU (occurrence: HU)
  Receive Date: 20220429
  Receipt Date: 20220429
  Transmission Date: 20220720
  Serious: Yes (Other)
  Sender: FDA-Public Use
  Company Number: HU-002147023-NVSC2022HU075147

PATIENT
  Age: 45 Year
  Sex: Female

DRUGS (2)
  1. LETROZOLE [Suspect]
     Active Substance: LETROZOLE
     Indication: Hormone receptor positive breast cancer
     Dosage: 2.5 MG, QD (CONTINOUSLY)
     Route: 065
     Dates: start: 2019
  2. KISQALI [Suspect]
     Active Substance: RIBOCICLIB
     Indication: Hormone receptor positive breast cancer
     Dosage: 600 MG, QD (FOR 21 DAYS, THEN 7 DAYS WITHOUT TREATMENT)
     Route: 065
     Dates: start: 2019

REACTIONS (5)
  - Metastases to lung [Unknown]
  - Neutropenia [Unknown]
  - Hepatotoxicity [Unknown]
  - Metastases to bone [Unknown]
  - Lung disorder [Unknown]
